FAERS Safety Report 9541949 (Version 1)
Quarter: 2013Q2

REPORT INFORMATION
  Report Type: Spontaneous
  Country: US (occurrence: None)
  Receive Date: 20130524
  Receipt Date: 20130524
  Transmission Date: 20140414
  Serious: Yes (Other)
  Sender: FDA-Public Use
  Company Number: PHEH2012US025470

PATIENT
  Age: 44 Year
  Sex: Female

DRUGS (7)
  1. GILENYA [Suspect]
     Dosage: 0.5 MG, QD, ORAL
     Route: 048
     Dates: start: 20120424
  2. LISINOPRIL (LISINOPRIL) [Concomitant]
  3. AMPHETAMINE (AMFETAMINE) (AMFETAMINE) [Concomitant]
  4. LEVOTHYROXINE (LEVOTHYROXINE) [Concomitant]
  5. MITAMIN MULTIVITAMIN MINI (ASCORBIC ACID, CYANOCOBALAMIN, FOLIC ACID, NICOTINIC ACID, PYRIDOXINE HYDROCHLORIDE, RIBOFLAVIN, THIAMINE HYDROCHLORIDE) [Concomitant]
  6. B COMPLEX (NICOTINAMIDE, PYRIDOXINE HYDROCHLORIDE, RIBOFLAVIN, THIAMINE HYDROCHLORIDE) [Concomitant]
  7. FISH OIL (FISH OIL) [Concomitant]

REACTIONS (3)
  - Insomnia [None]
  - Arthralgia [None]
  - Hypoaesthesia [None]
